FAERS Safety Report 12434334 (Version 1)
Quarter: 2016Q2

REPORT INFORMATION
  Report Type: Spontaneous
  Country: US (occurrence: US)
  Receive Date: 20160603
  Receipt Date: 20160603
  Transmission Date: 20160815
  Serious: Yes (Other)
  Sender: FDA-Public Use
  Company Number: US-INCYTE CORPORATION-2016IN002392

PATIENT
  Sex: Male
  Weight: 76.84 kg

DRUGS (2)
  1. CENTRUM [Concomitant]
     Active Substance: VITAMINS
     Indication: PRODUCT USED FOR UNKNOWN INDICATION
     Dosage: TAKE 1 TABLET DAILY
     Route: 048
  2. JAKAFI [Suspect]
     Active Substance: RUXOLITINIB
     Indication: MYELOFIBROSIS
     Dosage: 5 MG, BID
     Route: 048
     Dates: start: 20160413

REACTIONS (11)
  - Pyrexia [Recovered/Resolved]
  - Pancytopenia [Unknown]
  - Hepatitis C [Unknown]
  - Abdominal distension [Unknown]
  - Contusion [Not Recovered/Not Resolved]
  - Nephrolithiasis [Unknown]
  - Chills [Recovered/Resolved]
  - Optic ischaemic neuropathy [Unknown]
  - Fall [Unknown]
  - Haematoma [Not Recovered/Not Resolved]
  - Splenomegaly [Unknown]
